FAERS Safety Report 8614875-3 (Version None)
Quarter: 2012Q3

REPORT INFORMATION
  Report Type: 
  Country: None (occurrence: None)
  Receive Date: 20120823
  Receipt Date: 20120615
  Transmission Date: 20120928
  Serious: No
  Sender: FDA-Public Use
  Company Number: US-BRISTOL-MYERS SQUIBB COMPANY-16691081

PATIENT
  Age: 53 Year
  Sex: Male
  Weight: 91 kg

DRUGS (2)
  1. METFORMIN HCL [Suspect]
     Dates: start: 20120522
  2. KOMBIGLYZE XR [Suspect]
     Dosage: 1DF=5/500MG: 7 TABS
     Dates: start: 20120101

REACTIONS (2)
  - DIARRHOEA [None]
  - ABDOMINAL PAIN [None]
